FAERS Safety Report 10649516 (Version 3)
Quarter: 2014Q4

REPORT INFORMATION
  Report Type: Spontaneous
  Country: KR (occurrence: KR)
  Receive Date: 20141212
  Receipt Date: 20141222
  Transmission Date: 20150529
  Serious: No
  Sender: FDA-Public Use
  Company Number: KR-ABBVIE-14P-090-1314968-00

PATIENT
  Age: 13 Month
  Sex: Male

DRUGS (1)
  1. DEPAKOTE [Suspect]
     Active Substance: DIVALPROEX SODIUM
     Indication: SEVERE MYOCLONIC EPILEPSY OF INFANCY
     Route: 048
     Dates: start: 201410

REACTIONS (1)
  - Tremor [Unknown]

NARRATIVE: CASE EVENT DATE: 2014
